FAERS Safety Report 6600385-1 (Version None)
Quarter: 2010Q1

REPORT INFORMATION
  Report Type: 
  Country: None (occurrence: None)
  Receive Date: 20100224
  Receipt Date: 20100218
  Transmission Date: 20100710
  Serious: Yes (Hospitalization)
  Sender: FDA-Public Use
  Company Number: IT-ASTRAZENECA-2010SE07137

PATIENT
  Sex: Male

DRUGS (1)
  1. ATENOLOL [Suspect]
     Route: 065

REACTIONS (3)
  - BRADYCARDIA [None]
  - FATIGUE [None]
  - HEART SOUNDS ABNORMAL [None]
